FAERS Safety Report 4505058-7 (Version None)
Quarter: 2004Q4

REPORT INFORMATION
  Report Type: 
  Country: None (occurrence: None)
  Receive Date: 20041117
  Receipt Date: 20041117
  Transmission Date: 20050328
  Serious: Yes (Hospitalization)
  Sender: FDA-Public Use
  Company Number: None

PATIENT
  Age: 67 Year
  Sex: Male

DRUGS (2)
  1. CISPLATIN [Suspect]
     Indication: CARCINOMA
     Dosage: 71 MG   X 1 DOSE
     Dates: start: 20040728
  2. ETOPOSIDE [Suspect]
     Indication: CARCINOMA
     Dosage: 142 MG  X 3 DOSES

REACTIONS (1)
  - FEBRILE NEUTROPENIA [None]
